FAERS Safety Report 13774985 (Version 3)
Quarter: 2017Q3

REPORT INFORMATION
  Report Type: Spontaneous
  Country: IT (occurrence: IT)
  Receive Date: 20170721
  Receipt Date: 20170807
  Transmission Date: 20171127
  Serious: Yes (Other)
  Sender: FDA-Public Use
  Company Number: IT-ROCHE-1964667

PATIENT
  Age: 49 Year
  Sex: Male

DRUGS (6)
  1. PRIMIDONE. [Suspect]
     Active Substance: PRIMIDONE
     Indication: BALTIC MYOCLONIC EPILEPSY
     Route: 065
  2. LEVETIRACETAM. [Suspect]
     Active Substance: LEVETIRACETAM
     Indication: BALTIC MYOCLONIC EPILEPSY
     Route: 065
  3. TOPIRAMATE. [Suspect]
     Active Substance: TOPIRAMATE
     Indication: BALTIC MYOCLONIC EPILEPSY
     Route: 048
  4. CLONAZEPAM. [Suspect]
     Active Substance: CLONAZEPAM
     Indication: BALTIC MYOCLONIC EPILEPSY
     Route: 065
  5. LORAZEPAM. [Suspect]
     Active Substance: LORAZEPAM
     Indication: BALTIC MYOCLONIC EPILEPSY
     Route: 065
  6. VALPROIC ACID. [Suspect]
     Active Substance: VALPROIC ACID
     Indication: BALTIC MYOCLONIC EPILEPSY
     Route: 065

REACTIONS (6)
  - Delirium [Unknown]
  - Drug ineffective [Unknown]
  - Generalised tonic-clonic seizure [Recovering/Resolving]
  - Hallucination, visual [Unknown]
  - Persecutory delusion [Unknown]
  - Myoclonic epilepsy [Unknown]
